FAERS Safety Report 9128128 (Version 2)
Quarter: 2013Q3

REPORT INFORMATION
  Report Type: Spontaneous
  Country: FR (occurrence: FR)
  Receive Date: 20130228
  Receipt Date: 20130904
  Transmission Date: 20140515
  Serious: Yes (Hospitalization, Other)
  Sender: FDA-Public Use
  Company Number: FR-ELI_LILLY_AND_COMPANY-FR201302005520

PATIENT
  Age: 35 Year
  Sex: Male

DRUGS (3)
  1. ZYPREXA [Suspect]
     Indication: BIPOLAR DISORDER
     Dosage: 5 MG, BID
     Route: 048
     Dates: start: 201205, end: 201210
  2. XANAX [Suspect]
     Dosage: 0.25 MG, TID
     Route: 048
     Dates: start: 201205
  3. STILNOX [Suspect]
     Dosage: 10 MG, QD
     Route: 048
     Dates: start: 201205

REACTIONS (5)
  - Epilepsy [Recovered/Resolved]
  - Loss of consciousness [Unknown]
  - Haemoptysis [Unknown]
  - Amnesia [Unknown]
  - Drug withdrawal syndrome [Unknown]
